FAERS Safety Report 17899304 (Version 1)
Quarter: 2020Q2

REPORT INFORMATION
  Report Type: Report from Study
  Country: AR (occurrence: AR)
  Receive Date: 20200616
  Receipt Date: 20200616
  Transmission Date: 20200714
  Serious: Yes (Other)
  Sender: FDA-Public Use
  Company Number: NVSC2020AR165295

PATIENT
  Age: 62 Year
  Sex: Female

DRUGS (2)
  1. KISQALI [Suspect]
     Active Substance: RIBOCICLIB
     Indication: NEOPLASM MALIGNANT
     Dosage: 600 MG
     Route: 065
     Dates: start: 20190831, end: 202005
  2. KISQALI [Suspect]
     Active Substance: RIBOCICLIB
     Indication: BREAST CANCER
     Dosage: 3 DF, QD
     Route: 065
     Dates: start: 201909, end: 20200608

REACTIONS (5)
  - Retinitis [Not Recovered/Not Resolved]
  - Cough [Not Recovered/Not Resolved]
  - Concomitant disease aggravated [Not Recovered/Not Resolved]
  - Throat irritation [Not Recovered/Not Resolved]
  - Visual impairment [Not Recovered/Not Resolved]

NARRATIVE: CASE EVENT DATE: 201909
